FAERS Safety Report 8933326 (Version 1)
Quarter: 2012Q4

REPORT INFORMATION
  Report Type: 
  Country: FR (occurrence: FR)
  Receive Date: 20121129
  Receipt Date: 20121129
  Transmission Date: 20130627
  Serious: Yes (Hospitalization, Other)
  Sender: FDA-Public Use
  Company Number: PHHY2012FR107831

PATIENT
  Age: 86 Year
  Sex: Male

DRUGS (4)
  1. ZOMETA [Suspect]
     Indication: METASTASES TO BONE
     Dosage: 4 mg, every month
     Route: 042
     Dates: start: 201206, end: 201210
  2. ZESTRIL [Suspect]
     Indication: HYPERTENSION
     Dosage: 1 DF, QD
     Route: 048
     Dates: start: 2006, end: 20120630
  3. ZESTRIL [Suspect]
     Dosage: 1 DF, QD
     Route: 048
     Dates: end: 201210
  4. FLUDEX [Suspect]
     Dosage: 1 DF, QD

REACTIONS (6)
  - Renal failure acute [Recovered/Resolved]
  - Azotaemia [Unknown]
  - Blood creatinine increased [Unknown]
  - Creatinine renal clearance decreased [Unknown]
  - Fall [Unknown]
  - Rhabdomyolysis [Unknown]
